FAERS Safety Report 7228811-8 (Version None)
Quarter: 2011Q1

REPORT INFORMATION
  Report Type: 
  Country: None (occurrence: None)
  Receive Date: 20110117
  Receipt Date: 20100122
  Transmission Date: 20110831
  Serious: No
  Sender: FDA-Public Use
  Company Number: 2010BI002600

PATIENT
  Age: 45 Year
  Sex: Female

DRUGS (1)
  1. TYSABRI [Suspect]
     Indication: MULTIPLE SCLEROSIS
     Route: 042
     Dates: start: 20090924

REACTIONS (7)
  - VISUAL IMPAIRMENT [None]
  - MUSCULAR WEAKNESS [None]
  - MIGRAINE [None]
  - INFUSION SITE REACTION [None]
  - MEMORY IMPAIRMENT [None]
  - INFUSION SITE PAIN [None]
  - POOR VENOUS ACCESS [None]
